FAERS Safety Report 6627648-8 (Version None)
Quarter: 2010Q1

REPORT INFORMATION
  Report Type: 
  Country: None (occurrence: None)
  Receive Date: 20100311
  Receipt Date: 20100212
  Transmission Date: 20100710
  Serious: No
  Sender: FDA-Public Use
  Company Number: US-KINGPHARMUSA00001-K201000169

PATIENT
  Age: 48 Year
  Sex: Female

DRUGS (7)
  1. EMBEDA [Suspect]
     Indication: BACK PAIN
     Dosage: 50 MG, BID
     Route: 048
     Dates: start: 20100203, end: 20100208
  2. EMBEDA [Suspect]
     Indication: OSTEOARTHRITIS
  3. FLEXERIL [Concomitant]
     Dosage: 10 MG, TID
  4. NORCO [Concomitant]
     Dosage: 10 MG, QID
  5. ANTABUSE [Concomitant]
     Indication: ALCOHOLISM
     Dosage: 250 MG, QD
  6. PAXIL [Concomitant]
     Dosage: 75 MG, QD
  7. ZYPREXA [Concomitant]
     Dosage: 10 MG, QHS

REACTIONS (4)
  - DIARRHOEA [None]
  - HEADACHE [None]
  - INTENTIONAL DRUG MISUSE [None]
  - VOMITING [None]
